FAERS Safety Report 13718813 (Version 1)
Quarter: 2017Q3

REPORT INFORMATION
  Report Type: Spontaneous
  Country: IN (occurrence: IN)
  Receive Date: 20170705
  Receipt Date: 20170705
  Transmission Date: 20171127
  Serious: Yes (Hospitalization)
  Sender: FDA-Public Use
  Company Number: IN-FRESENIUS KABI-FK201705687

PATIENT
  Sex: Female

DRUGS (3)
  1. INTAXEL (PACLITAXEL) [Suspect]
     Active Substance: PACLITAXEL
     Indication: BREAST CANCER
     Route: 042
  2. INTAXEL (PACLITAXEL) [Suspect]
     Active Substance: PACLITAXEL
     Indication: METASTASES TO LIVER
     Route: 042
  3. INTAXEL (PACLITAXEL) [Suspect]
     Active Substance: PACLITAXEL
     Indication: BONE MARROW INFILTRATION

REACTIONS (5)
  - Rash generalised [Unknown]
  - Pruritus [Unknown]
  - Flushing [None]
  - Erythema [Unknown]
  - Dizziness [Unknown]

NARRATIVE: CASE EVENT DATE: 20170601
